FAERS Safety Report 16114538 (Version 1)
Quarter: 2019Q1

REPORT INFORMATION
  Report Type: Spontaneous
  Country: JP (occurrence: JP)
  Receive Date: 20190325
  Receipt Date: 20190325
  Transmission Date: 20190418
  Serious: Yes (Other)
  Sender: FDA-Public Use
  Company Number: JP-INGENUS PHARMACEUTICALS, LLC-INF201903-000182

PATIENT
  Age: 59 Year
  Sex: Male

DRUGS (11)
  1. IRINOTECAN [Suspect]
     Active Substance: IRINOTECAN
     Indication: METASTASES TO LIVER
     Dosage: 100 MG/M^2 , 75 PERCENT ON DAY 1, 8, AND 15 EVERY 4 WEEKS
  2. ETOPOSIDE. [Concomitant]
     Active Substance: ETOPOSIDE
     Indication: SMALL CELL LUNG CANCER
     Dosage: 100 MG/M^2 , DAYS 1-3, EVERY 3 WEEKS
  3. AMRUBICIN [Concomitant]
     Active Substance: AMRUBICIN
     Indication: METASTASES TO LIVER
     Dosage: 35 MG/M^2 , 75 PERCENT ON DAYS 1-3, EVERY 3 WEEKS
  4. IRINOTECAN [Suspect]
     Active Substance: IRINOTECAN
     Indication: METASTASES TO BONE
  5. IRINOTECAN [Suspect]
     Active Substance: IRINOTECAN
     Indication: SMALL CELL LUNG CANCER
  6. BEVACIZUMAB. [Concomitant]
     Active Substance: BEVACIZUMAB
     Indication: ADENOSQUAMOUS CELL CARCINOMA
  7. OSIMERTINIB. [Concomitant]
     Active Substance: OSIMERTINIB
     Indication: ADENOSQUAMOUS CELL CARCINOMA
  8. CISPLATIN. [Concomitant]
     Active Substance: CISPLATIN
     Indication: SMALL CELL LUNG CANCER
     Dosage: 80 MG/M^2 , DAY 1, EVERY 3 WEEKS
  9. AMRUBICIN [Concomitant]
     Active Substance: AMRUBICIN
     Indication: METASTASES TO BONE
  10. AMRUBICIN [Concomitant]
     Active Substance: AMRUBICIN
     Indication: SMALL CELL LUNG CANCER
  11. ERLOTINIB [Concomitant]
     Active Substance: ERLOTINIB
     Indication: ADENOSQUAMOUS CELL CARCINOMA

REACTIONS (1)
  - Superior vena cava syndrome [Unknown]
